FAERS Safety Report 5362954-9 (Version None)
Quarter: 2007Q2

REPORT INFORMATION
  Report Type: 
  Country: None (occurrence: None)
  Receive Date: 20070615
  Receipt Date: 20070605
  Transmission Date: 20071010
  Serious: Yes (Other)
  Sender: FDA-Public Use
  Company Number: S07-USA-01141-01

PATIENT
  Age: 40 Year
  Sex: Female

DRUGS (8)
  1. LEXAPRO [Suspect]
     Indication: ANXIETY
     Dosage: 10 MG QD PO
     Route: 048
     Dates: start: 20030101
  2. LEXAPRO [Suspect]
     Indication: ANXIETY
  3. LEXAPRO [Suspect]
     Indication: ANXIETY
     Dosage: 10 MG QD PO
     Route: 048
     Dates: end: 20070211
  4. LEXAPRO [Suspect]
     Indication: ANXIETY
     Dosage: 5 MG QD PO
     Route: 048
     Dates: start: 20070212, end: 20070308
  5. LEXAPRO [Suspect]
     Indication: ANXIETY
     Dosage: 5 MG QOD PO
     Route: 048
     Dates: start: 20070309, end: 20070403
  6. LEXAPRO [Suspect]
     Indication: ANXIETY
     Dosage: 5 MG QD PO
     Route: 048
     Dates: start: 20070404, end: 20070101
  7. XANAX [Concomitant]
  8. LEXAPRO ORAL SOLUTION (ESCITALOPRAM) [Concomitant]

REACTIONS (13)
  - ASTHENIA [None]
  - DECREASED APPETITE [None]
  - DISTURBANCE IN ATTENTION [None]
  - DIZZINESS [None]
  - DRUG WITHDRAWAL SYNDROME [None]
  - EMOTIONAL DISORDER [None]
  - HEART RATE INCREASED [None]
  - INCREASED APPETITE [None]
  - LIBIDO DECREASED [None]
  - PALPITATIONS [None]
  - PARAESTHESIA [None]
  - TREMOR [None]
  - WEIGHT INCREASED [None]
